FAERS Safety Report 26105758 (Version 1)
Quarter: 2025Q4

REPORT INFORMATION
  Report Type: Report from Study
  Country: US (occurrence: US)
  Receive Date: 20251201
  Receipt Date: 20251201
  Transmission Date: 20260119
  Serious: Yes (Disabling)
  Sender: ABBVIE
  Company Number: US-ABBVIE-6567513

PATIENT
  Sex: Female

DRUGS (2)
  1. ARMOUR THYROID [Suspect]
     Active Substance: THYROID, PORCINE
     Indication: Product used for unknown indication
     Dosage: STRENGTH - 30 MG
     Route: 048
  2. ARMOUR THYROID [Suspect]
     Active Substance: THYROID, PORCINE
     Indication: Product used for unknown indication
     Dosage: STRENGTH - 30 MG
     Route: 048

REACTIONS (1)
  - Disability [Not Recovered/Not Resolved]
